FAERS Safety Report 5694763-5 (Version None)
Quarter: 2008Q2

REPORT INFORMATION
  Report Type: 
  Country: None (occurrence: None)
  Receive Date: 20080404
  Receipt Date: 20080331
  Transmission Date: 20081010
  Serious: Yes (Death, Hospitalization)
  Sender: FDA-Public Use
  Company Number: US-JNJFOC-20080303803

PATIENT
  Sex: Female
  Weight: 49.9 kg

DRUGS (6)
  1. LEVAQUIN [Suspect]
     Indication: OSTEONECROSIS
     Route: 048
  2. FLAGYL [Concomitant]
     Indication: BODY TEMPERATURE INCREASED
     Route: 065
  3. TOPROL-XL [Concomitant]
     Indication: HYPERTENSION
     Route: 065
  4. SYNTHROID [Concomitant]
     Indication: HYPOTHYROIDISM
     Route: 065
  5. TORESAMIDE [Concomitant]
     Indication: DIURETIC THERAPY
     Route: 065
  6. METHYLPRED [Concomitant]
     Route: 065

REACTIONS (5)
  - CARDIAC ARREST [None]
  - CONVULSION [None]
  - DIZZINESS [None]
  - INSOMNIA [None]
  - TREMOR [None]
